FAERS Safety Report 11700925 (Version 2)
Quarter: 2016Q1

REPORT INFORMATION
  Report Type: Spontaneous
  Country: US (occurrence: US)
  Receive Date: 20151105
  Receipt Date: 20160309
  Transmission Date: 20160525
  Serious: Yes (Life-Threatening, Hospitalization)
  Sender: FDA-Public Use
  Company Number: US-BAYER-2015-460670

PATIENT
  Age: 27 Year
  Sex: Female
  Weight: 97.52 kg

DRUGS (1)
  1. MIRENA [Suspect]
     Active Substance: LEVONORGESTREL
     Indication: CONTRACEPTION
     Dosage: 20 MCG/24HR, CONT
     Route: 015
     Dates: start: 20110801, end: 20131218

REACTIONS (3)
  - Uterine perforation [None]
  - Abdominal pain lower [None]
  - Infection [None]

NARRATIVE: CASE EVENT DATE: 20131218
